FAERS Safety Report 6044475-3 (Version None)
Quarter: 2009Q1

REPORT INFORMATION
  Report Type: 
  Country: None (occurrence: None)
  Receive Date: 20090120
  Receipt Date: 20090116
  Transmission Date: 20090719
  Serious: Yes (Hospitalization, Other)
  Sender: FDA-Public Use
  Company Number: FR-BRISTOL-MYERS SQUIBB COMPANY-14415053

PATIENT
  Age: 20 Year
  Sex: Male

DRUGS (2)
  1. ABILIFY [Suspect]
     Indication: MENTAL DISORDER
     Dosage: WAS WITHDRAWN FROM 03 TO 21OCT08 NOT REINTRODUCED.
     Route: 048
     Dates: start: 20080801
  2. RIVOTRIL [Suspect]
     Indication: MENTAL DISORDER
     Dosage: STRENGTH: 2MG HALF OF 1 TABLET BID (MORNING AND EVENING)
     Route: 048
     Dates: start: 20080801

REACTIONS (2)
  - AGRANULOCYTOSIS [None]
  - SCROTAL ULCER [None]
